FAERS Safety Report 12756031 (Version 1)
Quarter: 2016Q3

REPORT INFORMATION
  Report Type: Spontaneous
  Country: US (occurrence: US)
  Receive Date: 20160916
  Receipt Date: 20160916
  Transmission Date: 20161109
  Serious: Yes (Hospitalization, Disabling)
  Sender: FDA-Public Use
  Company Number: US-ASTRAZENECA-2016SE96425

PATIENT
  Age: 52 Year
  Sex: Female
  Weight: 72.6 kg

DRUGS (12)
  1. SYMBICORT [Suspect]
     Active Substance: BUDESONIDE\FORMOTEROL FUMARATE DIHYDRATE
     Indication: ASTHMA
     Dosage: 160/4.5 UG
     Route: 055
  2. TRAMADOL ACETAMINOPHEN [Concomitant]
     Indication: ARTHRITIS
     Dosage: 37.5 MG/325 MG, 1 TAB EVERY 6 HOURS AS NEEDED
     Route: 048
  3. TRAMADOL ACETAMINOPHEN [Concomitant]
     Indication: FIBROMYALGIA
     Dosage: 37.5 MG/325 MG, 1 TAB EVERY 6 HOURS AS NEEDED
     Route: 048
  4. SPIRIVA [Concomitant]
     Active Substance: TIOTROPIUM BROMIDE MONOHYDRATE
     Indication: CHRONIC OBSTRUCTIVE PULMONARY DISEASE
     Route: 055
  5. GABAPENTIN. [Concomitant]
     Active Substance: GABAPENTIN
     Indication: PAIN
     Dosage: 1500.0MG UNKNOWN
     Route: 048
  6. SYMBICORT [Suspect]
     Active Substance: BUDESONIDE\FORMOTEROL FUMARATE DIHYDRATE
     Indication: CHRONIC OBSTRUCTIVE PULMONARY DISEASE
     Dosage: 160/4.5 UG
     Route: 055
  7. ALPRAZOLAM. [Concomitant]
     Active Substance: ALPRAZOLAM
     Indication: ANXIETY
     Dosage: 0.5 MG 3 TIMES A DAY AS NEEDED BUT TAKES 1 DAILY AS NEEDED OCCASIONALLY ONCE EVERY 1-2 WEEKS
     Route: 048
     Dates: start: 2015
  8. SYMBICORT [Suspect]
     Active Substance: BUDESONIDE\FORMOTEROL FUMARATE DIHYDRATE
     Indication: EMPHYSEMA
     Dosage: 160/4.5 UG
     Route: 055
  9. BUSPIRONE [Concomitant]
     Active Substance: BUSPIRONE HYDROCHLORIDE
     Indication: ANXIETY
     Route: 048
     Dates: start: 2015
  10. AMLODIPINE [Concomitant]
     Active Substance: AMLODIPINE BESYLATE
     Indication: HYPERTENSION
     Route: 048
  11. OXYBUTYNIN [Concomitant]
     Active Substance: OXYBUTYNIN
     Indication: INCONTINENCE
     Route: 048
  12. TRAMADOL ACETAMINOPHEN [Concomitant]
     Indication: NEURALGIA
     Dosage: 37.5 MG/325 MG, 1 TAB EVERY 6 HOURS AS NEEDED
     Route: 048

REACTIONS (12)
  - Pneumothorax [Unknown]
  - Mobility decreased [Unknown]
  - Hypertension [Unknown]
  - Chronic obstructive pulmonary disease [Unknown]
  - Diverticulitis [Unknown]
  - Gastrooesophageal reflux disease [Unknown]
  - Arthritis [Unknown]
  - Drug dose omission [Unknown]
  - Memory impairment [Unknown]
  - Fibromyalgia [Unknown]
  - Anxiety [Not Recovered/Not Resolved]
  - Rheumatoid arthritis [Unknown]

NARRATIVE: CASE EVENT DATE: 2010
